FAERS Safety Report 24053717 (Version 1)
Quarter: 2024Q3

REPORT INFORMATION
  Report Type: Spontaneous
  Country: US (occurrence: None)
  Receive Date: 20240703
  Receipt Date: 20240703
  Transmission Date: 20241017
  Serious: No
  Sender: Public
  Company Number: None

PATIENT
  Sex: Male

DRUGS (1)
  1. GLATOPA [Suspect]
     Active Substance: GLATIRAMER ACETATE
     Indication: Multiple sclerosis
     Dosage: 20 MG DAILY SUBCUTANEOUSLY
     Route: 058
     Dates: start: 201909

REACTIONS (6)
  - Malaise [None]
  - Pneumonia [None]
  - Multiple sclerosis relapse [None]
  - Complication associated with device [None]
  - Asthenia [None]
  - Drug ineffective [None]
